FAERS Safety Report 8143203-5 (Version None)
Quarter: 2012Q1

REPORT INFORMATION
  Report Type: 
  Country: None (occurrence: None)
  Receive Date: 20120217
  Receipt Date: 20120214
  Transmission Date: 20120608
  Serious: No
  Sender: FDA-Public Use
  Company Number: US-PFIZER INC-2012040169

PATIENT
  Sex: Male

DRUGS (1)
  1. VIAGRA [Suspect]
     Indication: SUBSTANCE USE
     Dosage: 200 MG, UNK
     Route: 048
     Dates: start: 20120214

REACTIONS (2)
  - PAIN [None]
  - SWELLING [None]
